FAERS Safety Report 9891616 (Version 1)
Quarter: 2014Q1

REPORT INFORMATION
  Report Type: Spontaneous
  Country: US (occurrence: None)
  Receive Date: 20140211
  Receipt Date: 20140211
  Transmission Date: 20141002
  Serious: Yes (Hospitalization)
  Sender: FDA-Public Use
  Company Number: None

PATIENT
  Age: 21 Year
  Sex: Male
  Weight: 58.7 kg

DRUGS (2)
  1. ACETAMINOPHEN [Suspect]
     Indication: SUICIDE ATTEMPT
     Route: 048
     Dates: start: 20111011, end: 20111011
  2. IBUPROFEN [Suspect]
     Indication: SUICIDE ATTEMPT
     Route: 048
     Dates: start: 20111011, end: 20111011

REACTIONS (5)
  - Nausea [None]
  - Vomiting [None]
  - Abdominal pain [None]
  - Suicide attempt [None]
  - Exposure via ingestion [None]
